FAERS Safety Report 5972090-6 (Version None)
Quarter: 2008Q4

REPORT INFORMATION
  Report Type: 
  Country: None (occurrence: None)
  Receive Date: 20081201
  Receipt Date: 20080429
  Transmission Date: 20090506
  Serious: No
  Sender: FDA-Public Use
  Company Number: US-TEVA-171043USA

PATIENT
  Age: 88 Year
  Sex: Male

DRUGS (4)
  1. SALBUTAMOL SULFATE INHALATION, 0.09 MG [Suspect]
     Route: 055
  2. MONTELUKAST SODIUM [Suspect]
  3. TIOTROPIUM BROMIDE [Suspect]
  4. PREDNISONE TAB [Suspect]
     Route: 048

REACTIONS (1)
  - RASH [None]
